FAERS Safety Report 7373023-0 (Version None)
Quarter: 2011Q1

REPORT INFORMATION
  Report Type: 
  Country: None (occurrence: None)
  Receive Date: 20110311
  Receipt Date: 20110302
  Transmission Date: 20110831
  Serious: Yes (Hospitalization)
  Sender: FDA-Public Use
  Company Number: WAES 1101USA00819

PATIENT
  Age: 74 Year
  Sex: Female
  Weight: 54.8852 kg

DRUGS (8)
  1. AMITRIPTYLINE HYDROCHLORIDE [Concomitant]
  2. METOCLOPRAMIDE [Concomitant]
  3. CAP VORINOSTAT UNK [Suspect]
     Indication: B-CELL LYMPHOMA
     Dosage: 400 NG, DAILY, PO
     Route: 048
     Dates: start: 20101025, end: 20110109
  4. BUTALBITAL [Concomitant]
  5. ASPIRIN [Concomitant]
  6. LORAZEPAM [Concomitant]
  7. ZOFRAN [Concomitant]
  8. NIACINAMIDE [Suspect]
     Indication: B-CELL LYMPHOMA
     Dosage: 4600 MG, DAILY, PO
     Route: 048
     Dates: start: 20101025, end: 20110109

REACTIONS (18)
  - HYDROCEPHALUS [None]
  - CEREBRAL ISCHAEMIA [None]
  - SYNCOPE [None]
  - NAUSEA [None]
  - FLUID INTAKE REDUCED [None]
  - INSOMNIA [None]
  - FALL [None]
  - PYREXIA [None]
  - ORTHOSTATIC HYPOTENSION [None]
  - CEREBRAL VENTRICLE DILATATION [None]
  - LUNG NEOPLASM [None]
  - BRONCHIECTASIS [None]
  - BRONCHIAL WALL THICKENING [None]
  - CEREBRAL ATROPHY [None]
  - INFECTION [None]
  - COMPUTERISED TOMOGRAM THORAX ABNORMAL [None]
  - DECREASED APPETITE [None]
  - COUGH [None]
